FAERS Safety Report 4623218-1 (Version None)
Quarter: 2005Q1

REPORT INFORMATION
  Report Type: 
  Country: None (occurrence: None)
  Receive Date: 20050330
  Receipt Date: 20050321
  Transmission Date: 20050727
  Serious: Yes (Hospitalization)
  Sender: FDA-Public Use
  Company Number: TAP2005Q00382

PATIENT
  Age: 41 Year
  Sex: Female
  Weight: 53.5244 kg

DRUGS (2)
  1. LUPRON DEPOT-3 [Suspect]
     Indication: MENORRHAGIA
     Dosage: 3.75 MG, 1 IN 1 M, INTRAMUSCULAR
     Route: 030
     Dates: start: 20040901
  2. COUMADIN [Suspect]
     Indication: HEART VALVE REPLACEMENT

REACTIONS (1)
  - HAEMORRHAGIC STROKE [None]
